FAERS Safety Report 5599336-0 (Version None)
Quarter: 2008Q1

REPORT INFORMATION
  Report Type: 
  Country: None (occurrence: None)
  Receive Date: 20080122
  Receipt Date: 20050408
  Transmission Date: 20080703
  Serious: Yes (Hospitalization, Other)
  Sender: FDA-Public Use
  Company Number: KR-PFIZER INC-2005057286

PATIENT
  Age: 70 Year
  Sex: Female

DRUGS (2)
  1. NORVASC [Suspect]
     Indication: HYPERTENSION
     Route: 048
  2. ACETYLSALICYLIC ACID [Concomitant]
     Indication: HYPERTENSION
     Dosage: FREQ:UNKNOWN
     Route: 048

REACTIONS (5)
  - EPISTAXIS [None]
  - EYELID BLEEDING [None]
  - HEADACHE [None]
  - HYPERTENSION [None]
  - MOUTH HAEMORRHAGE [None]
